FAERS Safety Report 7374553-8 (Version None)
Quarter: 2011Q1

REPORT INFORMATION
  Report Type: 
  Country: None (occurrence: None)
  Receive Date: 20110325
  Receipt Date: 20100311
  Transmission Date: 20110831
  Serious: No
  Sender: FDA-Public Use
  Company Number: US-MYLANLABS-2010S1004375

PATIENT
  Age: 60 Year
  Sex: Female
  Weight: 56.7 kg

DRUGS (15)
  1. FENTANYL-100 [Suspect]
     Dosage: Q72 HOURS
     Route: 062
     Dates: start: 20091201, end: 20100201
  2. ZYRTEC [Concomitant]
     Route: 048
  3. ADVIL LIQUI-GELS [Concomitant]
     Route: 048
  4. FENTANYL-100 [Suspect]
     Dosage: Q 72 HOURS
     Route: 062
     Dates: start: 20100201
  5. FENTANYL-100 [Suspect]
     Indication: NECK PAIN
     Dosage: Q 72 HOURS
     Route: 062
     Dates: start: 20040101, end: 20070101
  6. FENTANYL-100 [Suspect]
     Dosage: Q72 HOURS
     Route: 062
     Dates: start: 20091201, end: 20100201
  7. PREMARIN [Concomitant]
     Route: 048
  8. VITAMIN B-12 [Concomitant]
  9. FENTANYL-100 [Suspect]
     Indication: BACK PAIN
     Dosage: Q 72 HOURS
     Route: 062
     Dates: start: 20040101, end: 20070101
  10. FENTANYL-100 [Suspect]
     Dosage: Q 72 HOURS
     Route: 062
     Dates: start: 20100201
  11. FENTANYL-100 [Suspect]
     Dosage: Q 72 HOURS
     Route: 062
     Dates: start: 20070101, end: 20091201
  12. LISINOPRIL AND HYDROCHLOROTHIAZIDE [Concomitant]
     Dosage: 12.5MG
     Route: 048
  13. PREVACID [Concomitant]
     Route: 048
  14. LIMBITROL /00033501/ [Concomitant]
     Route: 048
  15. FENTANYL-100 [Suspect]
     Dosage: Q 72 HOURS
     Route: 062
     Dates: start: 20070101, end: 20091201

REACTIONS (11)
  - HYPERHIDROSIS [None]
  - MENTAL IMPAIRMENT [None]
  - ANXIETY [None]
  - RALES [None]
  - ASTHENIA [None]
  - FATIGUE [None]
  - HEADACHE [None]
  - CONFUSIONAL STATE [None]
  - SOMNOLENCE [None]
  - ARTHRALGIA [None]
  - DRUG WITHDRAWAL SYNDROME [None]
